FAERS Safety Report 9439729 (Version 3)
Quarter: 2013Q3

REPORT INFORMATION
  Report Type: Spontaneous
  Country: JP (occurrence: JP)
  Receive Date: 20130805
  Receipt Date: 20130830
  Transmission Date: 20140515
  Serious: Yes (Hospitalization)
  Sender: FDA-Public Use
  Company Number: JP-AMGEN-JPNSP2013053889

PATIENT
  Age: 66 Year
  Sex: Female
  Weight: 60 kg

DRUGS (15)
  1. MIMPARA [Suspect]
     Indication: HYPERPARATHYROIDISM SECONDARY
     Dosage: 25 MG, QD
     Route: 048
     Dates: start: 20120606, end: 20121205
  2. MIMPARA [Suspect]
     Dosage: 50 MG, QD
     Route: 048
     Dates: start: 20121206, end: 20130531
  3. MIMPARA [Suspect]
     Dosage: 75 MG, QD
     Route: 048
     Dates: start: 20130601, end: 20130720
  4. MIMPARA [Suspect]
     Dosage: 50 MG, QD
     Route: 048
     Dates: start: 20130721
  5. ATELEC [Concomitant]
     Dosage: 20 MG, QD
     Route: 048
  6. ATELEC [Concomitant]
     Dosage: 10 MG, BID
     Route: 048
     Dates: start: 20120123
  7. OXAROL [Concomitant]
     Dosage: 2.5 MUG, TID
     Route: 042
  8. OXAROL [Concomitant]
     Dosage: 5 MUG, 3X/WEEK
     Route: 042
     Dates: start: 20130301
  9. OXAROL [Concomitant]
     Dosage: 5 MUG, 3X/WEEK
  10. ARTIST [Concomitant]
     Dosage: 5 MG, QD
     Route: 048
     Dates: start: 20120123
  11. EPOGIN INJECTION 1500,3000 [Concomitant]
     Dosage: 1500 IU, 3X/WEEK
     Route: 042
     Dates: start: 20120201
  12. RENAGEL [Concomitant]
     Dosage: 250 MG, TID
     Route: 048
     Dates: start: 20120330
  13. ARGAMATE [Concomitant]
     Dosage: 50 G, UNK
     Route: 048
     Dates: start: 20120413
  14. FOSRENOL [Concomitant]
     Dosage: 250 MG, QD
     Route: 048
     Dates: start: 20120511
  15. BAYASPIRIN [Concomitant]
     Dosage: 100 MG, QD
     Route: 048
     Dates: start: 20130410

REACTIONS (1)
  - Osteonecrosis [Recovering/Resolving]
